FAERS Safety Report 10211593 (Version 5)
Quarter: 2017Q2

REPORT INFORMATION
  Report Type: Report from Study
  Country: US (occurrence: US)
  Receive Date: 20140602
  Receipt Date: 20170519
  Transmission Date: 20170829
  Serious: Yes (Hospitalization)
  Sender: FDA-Public Use
  Company Number: US-ACTELION-A-US2014-94008

PATIENT
  Age: 61 Year
  Sex: Female

DRUGS (24)
  1. CRESTOR [Concomitant]
     Active Substance: ROSUVASTATIN CALCIUM
  2. CITALOPRAM [Concomitant]
     Active Substance: CITALOPRAM HYDROBROMIDE
  3. VICTOZA [Concomitant]
     Active Substance: LIRAGLUTIDE
  4. NYSTATIN. [Concomitant]
     Active Substance: NYSTATIN
  5. SILDENAFIL. [Concomitant]
     Active Substance: SILDENAFIL
  6. ACETYLCYSTEINE. [Concomitant]
     Active Substance: ACETYLCYSTEINE
  7. FUROSEMIDE. [Concomitant]
     Active Substance: FUROSEMIDE
  8. CHOLECALCIFEROL [Concomitant]
     Active Substance: CHOLECALCIFEROL
  9. MORPHINE [Concomitant]
     Active Substance: MORPHINE
  10. PLAVIX [Concomitant]
     Active Substance: CLOPIDOGREL BISULFATE
  11. ALBUTEROL W/IPRATROPIUM [Concomitant]
     Active Substance: ALBUTEROL\IPRATROPIUM
  12. MAGNESIUM [Concomitant]
     Active Substance: MAGNESIUM
  13. FLUTICASONE. [Concomitant]
     Active Substance: FLUTICASONE
  14. LOSARTAN. [Concomitant]
     Active Substance: LOSARTAN
  15. POTASSIUM CHLORIDE. [Concomitant]
     Active Substance: POTASSIUM CHLORIDE
  16. MICONAZOLE. [Concomitant]
     Active Substance: MICONAZOLE
  17. SPIRONOLACTONE. [Concomitant]
     Active Substance: SPIRONOLACTONE
  18. METOLAZONE. [Concomitant]
     Active Substance: METOLAZONE
  19. TRACLEER [Suspect]
     Active Substance: BOSENTAN
     Indication: PULMONARY ARTERIAL HYPERTENSION
     Dosage: 125 MG, UNK
     Route: 048
  20. ALPRAZOLAM. [Concomitant]
     Active Substance: ALPRAZOLAM
  21. GLIMEPIRIDE. [Concomitant]
     Active Substance: GLIMEPIRIDE
  22. LORATADINE. [Concomitant]
     Active Substance: LORATADINE
  23. PANTOPRAZOLE [Concomitant]
     Active Substance: PANTOPRAZOLE
  24. ALBUTEROL. [Concomitant]
     Active Substance: ALBUTEROL

REACTIONS (7)
  - Upper respiratory tract infection [Unknown]
  - Pneumonia [Recovering/Resolving]
  - Metapneumovirus infection [Recovering/Resolving]
  - Influenza [Recovering/Resolving]
  - Respiratory distress [Recovering/Resolving]
  - Hypoxia [Recovering/Resolving]
  - Oxygen saturation decreased [Unknown]

NARRATIVE: CASE EVENT DATE: 20140517
